FAERS Safety Report 13489565 (Version 1)
Quarter: 2017Q2

REPORT INFORMATION
  Report Type: Spontaneous
  Country: US (occurrence: US)
  Receive Date: 20170426
  Receipt Date: 20170426
  Transmission Date: 20170830
  Serious: No
  Sender: FDA-Public Use
  Company Number: US-ALKERMES INC.-ALK-2017-001171

PATIENT
  Age: 30 Year
  Sex: Male
  Weight: 73.92 kg

DRUGS (1)
  1. VIVITROL [Suspect]
     Active Substance: NALTREXONE
     Indication: DRUG USE DISORDER
     Dosage: 380 MG, QMO
     Route: 030
     Dates: start: 20161223, end: 20170321

REACTIONS (5)
  - Pain [Unknown]
  - Malaise [Unknown]
  - Fatigue [Unknown]
  - Sluggishness [Unknown]
  - Pyrexia [Unknown]

NARRATIVE: CASE EVENT DATE: 20161223
